FAERS Safety Report 6758170-6 (Version None)
Quarter: 2010Q2

REPORT INFORMATION
  Report Type: 
  Country: None (occurrence: None)
  Receive Date: 20100607
  Receipt Date: 20100528
  Transmission Date: 20101027
  Serious: No
  Sender: FDA-Public Use
  Company Number: GB-TEVA-224828ISR

PATIENT
  Sex: Female

DRUGS (3)
  1. ACYCLOVIR SODIUM [Suspect]
     Indication: HERPES ZOSTER
     Dates: start: 20100120
  2. INFLIXIMAB [Suspect]
     Indication: CROHN'S DISEASE
     Route: 042
     Dates: start: 20071101
  3. INFLIXIMAB [Suspect]
     Route: 042
     Dates: start: 20091217

REACTIONS (3)
  - BLOOD ALBUMIN DECREASED [None]
  - HEPATIC ENZYME INCREASED [None]
  - HERPES ZOSTER [None]
